FAERS Safety Report 8278274-9 (Version None)
Quarter: 2012Q2

REPORT INFORMATION
  Report Type: 
  Country: None (occurrence: None)
  Receive Date: 20120412
  Receipt Date: 20120228
  Transmission Date: 20120825
  Serious: No
  Sender: FDA-Public Use
  Company Number: US-ASTRAZENECA-2011SE04247

PATIENT
  Age: 54 Year
  Sex: Female

DRUGS (2)
  1. ARMOR THYROID [Concomitant]
  2. NEXIUM [Suspect]
     Route: 048

REACTIONS (3)
  - UPPER RESPIRATORY TRACT INFECTION [None]
  - MALAISE [None]
  - INAPPROPRIATE SCHEDULE OF DRUG ADMINISTRATION [None]
